FAERS Safety Report 18555600 (Version 6)
Quarter: 2021Q3

REPORT INFORMATION
  Report Type: Report from Study
  Country: US (occurrence: US)
  Receive Date: 20201127
  Receipt Date: 20210921
  Transmission Date: 20211014
  Serious: Yes (Hospitalization, Other)
  Sender: FDA-Public Use
  Company Number: US-SHIRE-US202021918

PATIENT
  Sex: Female

DRUGS (1)
  1. HUMAN IMMUNOGLOBULIN; HYALURONIDASE [Suspect]
     Active Substance: HUMAN IMMUNOGLOBULIN G\HYALURONIDASE RECOMBINANT HUMAN
     Indication: IMMUNODEFICIENCY COMMON VARIABLE
     Dosage: UNK
     Route: 065

REACTIONS (16)
  - Arthropathy [Unknown]
  - Diabetes mellitus [Unknown]
  - Head injury [Unknown]
  - Tooth fracture [Unknown]
  - Visual impairment [Unknown]
  - Malaise [Unknown]
  - Macular degeneration [Unknown]
  - Fatigue [Unknown]
  - Loss of consciousness [Unknown]
  - Eye disorder [Unknown]
  - Contusion [Unknown]
  - Dysphonia [Unknown]
  - Atrial fibrillation [Unknown]
  - Fall [Unknown]
  - Hypotension [Unknown]
  - Infection [Unknown]
